FAERS Safety Report 5830361-8 (Version None)
Quarter: 2008Q3

REPORT INFORMATION
  Report Type: 
  Country: None (occurrence: None)
  Receive Date: 20080801
  Receipt Date: 20080722
  Transmission Date: 20090109
  Serious: Yes (Other)
  Sender: FDA-Public Use
  Company Number: BR-ROCHE-577485

PATIENT
  Age: 65 Year
  Sex: Female
  Weight: 68 kg

DRUGS (5)
  1. RIVOTRIL [Suspect]
     Indication: ANXIETY
     Route: 048
     Dates: start: 20000101
  2. FLUOXETINE [Concomitant]
     Indication: DEPRESSION
     Route: 048
  3. ENALAPRIL MALEATE [Concomitant]
     Indication: HYPERTENSION
  4. SYNTHROID [Concomitant]
     Indication: THYROID DISORDER
  5. XALATAN [Concomitant]
     Indication: GLAUCOMA

REACTIONS (3)
  - MALAISE [None]
  - NO THERAPEUTIC RESPONSE [None]
  - THYROID NEOPLASM [None]
